FAERS Safety Report 5196630-2 (Version None)
Quarter: 2006Q4

REPORT INFORMATION
  Report Type: 
  Country: None (occurrence: None)
  Receive Date: 20061227
  Receipt Date: 20061215
  Transmission Date: 20070319
  Serious: Yes (Other)
  Sender: FDA-Public Use
  Company Number: 2006300118

PATIENT
  Age: 70 Year
  Sex: Female
  Weight: 55.8 kg

DRUGS (5)
  1. ROGAINE [Suspect]
     Indication: ALOPECIA
     Dosage: 1 ML TWICE DAILY (1 ML), TOPICAL
     Route: 061
  2. COUMADIN [Concomitant]
  3. IRON (IRON) [Concomitant]
  4. VITAMIN C (VITAMIN C) [Concomitant]
  5. CALCIUM (CALCIUM) [Concomitant]

REACTIONS (3)
  - ALOPECIA [None]
  - CONDITION AGGRAVATED [None]
  - HIP ARTHROPLASTY [None]
